FAERS Safety Report 18717428 (Version 4)
Quarter: 2021Q4

REPORT INFORMATION
  Report Type: Report from Study
  Country: US (occurrence: US)
  Receive Date: 20210108
  Receipt Date: 20211022
  Transmission Date: 20220304
  Serious: Yes (Hospitalization, Other)
  Sender: FDA-Public Use
  Company Number: US-JNJFOC-20210100921

PATIENT
  Age: 75 Year
  Sex: Female
  Weight: 52.4 kg

DRUGS (2)
  1. TECLISTAMAB [Suspect]
     Active Substance: TECLISTAMAB
     Indication: Plasma cell myeloma
     Route: 058
     Dates: start: 20201201
  2. DARATUMUMAB [Suspect]
     Active Substance: DARATUMUMAB
     Indication: Plasma cell myeloma
     Route: 058
     Dates: start: 20201130

REACTIONS (3)
  - Injection site erythema [Recovered/Resolved]
  - Cytokine release syndrome [Recovered/Resolved]
  - Parvovirus infection [Not Recovered/Not Resolved]

NARRATIVE: CASE EVENT DATE: 20201229
